FAERS Safety Report 9813011 (Version 1)
Quarter: 2014Q1

REPORT INFORMATION
  Report Type: Report from Study
  Country: FR (occurrence: FR)
  Receive Date: 20140113
  Receipt Date: 20140113
  Transmission Date: 20141002
  Serious: Yes (Other)
  Sender: FDA-Public Use
  Company Number: FR-ASTELLAS-2014US000276

PATIENT
  Sex: 0

DRUGS (2)
  1. ERLOTINIB TABLET [Suspect]
     Indication: NON-SMALL CELL LUNG CANCER
     Dosage: 150 MG, UID/QD
     Route: 065
  2. EVEROLIMUS [Suspect]
     Indication: NON-SMALL CELL LUNG CANCER
     Dosage: 5 MG, UID/QD
     Route: 065

REACTIONS (1)
  - Hyperglycaemia [Unknown]
